FAERS Safety Report 6842305-0 (Version None)
Quarter: 2010Q3

REPORT INFORMATION
  Report Type: 
  Country: None (occurrence: None)
  Receive Date: 20100714
  Receipt Date: 20070724
  Transmission Date: 20110219
  Serious: Yes (Other)
  Sender: FDA-Public Use
  Company Number: US-PFIZER INC-2007062312

PATIENT
  Sex: Female
  Weight: 59 kg

DRUGS (2)
  1. CHANTIX [Suspect]
     Indication: SMOKING CESSATION THERAPY
     Route: 048
     Dates: start: 20070720
  2. TYLENOL [Concomitant]

REACTIONS (5)
  - BEDRIDDEN [None]
  - HYPERAESTHESIA [None]
  - MIGRAINE [None]
  - THINKING ABNORMAL [None]
  - TINNITUS [None]
